FAERS Safety Report 4382217-8 (Version None)
Quarter: 2004Q2

REPORT INFORMATION
  Report Type: 
  Country: None (occurrence: None)
  Receive Date: 20040618
  Receipt Date: 20040618
  Transmission Date: 20050107
  Serious: Yes (Hospitalization)
  Sender: FDA-Public Use
  Company Number: None

PATIENT
  Sex: Male

DRUGS (1)
  1. CAPECITABINE [Suspect]
     Indication: RECTAL CANCER
     Dosage: (1,150 MG BID) 2,300 MG TOTAL/DAY
     Dates: start: 20040407, end: 20040514

REACTIONS (3)
  - DIARRHOEA [None]
  - INTESTINAL OBSTRUCTION [None]
  - URINARY TRACT INFECTION ENTEROCOCCAL [None]
